FAERS Safety Report 25586510 (Version 4)
Quarter: 2025Q4

REPORT INFORMATION
  Report Type: Spontaneous
  Country: US (occurrence: US)
  Receive Date: 20250721
  Receipt Date: 20251120
  Transmission Date: 20260117
  Serious: Yes (Other)
  Sender: PFIZER
  Company Number: US-PFIZER INC-PV202500085808

PATIENT
  Age: 57 Year
  Sex: Female

DRUGS (73)
  1. DOCETAXEL [Suspect]
     Active Substance: DOCETAXEL
     Indication: Non-small cell lung cancer metastatic
     Dosage: 131 MG, SINGLE (CYCLE 1 OF 36 CYCLES, EVERY 3 WEEKS)
     Dates: start: 20220412, end: 20220412
  2. DOCETAXEL [Suspect]
     Active Substance: DOCETAXEL
     Dosage: 131 MG, SINGLE (CYCLE 2 OF 36 CYCLES, EVERY 3 WEEKS)
     Dates: start: 20220503, end: 20220503
  3. DOCETAXEL [Suspect]
     Active Substance: DOCETAXEL
     Dosage: 131 MG, SINGLE (CYCLE 3 OF 36 CYCLES, EVERY 3 WEEKS)
     Dates: start: 20220524, end: 20220524
  4. DOCETAXEL [Suspect]
     Active Substance: DOCETAXEL
     Dosage: 131 MG, SINGLE (CYCLE 4 OF 36 CYCLES, EVERY 3 WEEKS)
     Dates: start: 20220614, end: 20220614
  5. DOCETAXEL [Suspect]
     Active Substance: DOCETAXEL
     Dosage: 131 MG, SINGLE (CYCLE 5 OF 36 CYCLES, EVERY 3 WEEKS)
     Dates: start: 20220705, end: 20220705
  6. DOCETAXEL [Suspect]
     Active Substance: DOCETAXEL
     Dosage: 131 MG, SINGLE (CYCLE 6 OF 36 CYCLES, EVERY 3 WEEKS)
     Dates: start: 20220726, end: 20220726
  7. DOCETAXEL [Suspect]
     Active Substance: DOCETAXEL
     Dosage: 131 MG, SINGLE (CYCLE 7 OF 36 CYCLES, EVERY 3 WEEKS)
     Dates: start: 20220816, end: 20220816
  8. DOCETAXEL [Suspect]
     Active Substance: DOCETAXEL
     Dosage: 110 MG, SINGLE (CYCLE 8 OF 36 CYCLES, EVERY 3 WEEKS)
     Dates: start: 20220906, end: 20220906
  9. DOCETAXEL [Suspect]
     Active Substance: DOCETAXEL
     Dosage: 110 MG, SINGLE (CYCLE 9 OF 36 CYCLES, EVERY 3 WEEKS)
     Dates: start: 20220927, end: 20220927
  10. DOCETAXEL [Suspect]
     Active Substance: DOCETAXEL
     Dosage: 110 MG, SINGLE (CYCLE 10 OF 36 CYCLES, EVERY 3 WEEKS)
     Dates: start: 20221018, end: 20221018
  11. DOCETAXEL [Suspect]
     Active Substance: DOCETAXEL
     Dosage: 110 MG, SINGLE (CYCLE 11 OF 36 CYCLES, EVERY 3 WEEKS)
     Dates: start: 20221108, end: 20221108
  12. DOCETAXEL [Suspect]
     Active Substance: DOCETAXEL
     Dosage: 110 MG, SINGLE (CYCLE 12 OF 36 CYCLES, EVERY 3 WEEKS)
     Dates: start: 20221129, end: 20221129
  13. DOCETAXEL [Suspect]
     Active Substance: DOCETAXEL
     Dosage: 110 MG, SINGLE (CYCLE 13 OF 36 CYCLES, EVERY 3 WEEKS)
     Dates: start: 20221220, end: 20221220
  14. DOCETAXEL [Suspect]
     Active Substance: DOCETAXEL
     Dosage: 104 MG, SINGLE (CYCLE 14 OF 36 CYCLES, EVERY 3 WEEKS)
     Dates: start: 20230110, end: 20230110
  15. DOCETAXEL [Suspect]
     Active Substance: DOCETAXEL
     Dosage: 104 MG, SINGLE (CYCLE 15 OF 36 CYCLES, EVERY 3 WEEKS)
     Dates: start: 20230131, end: 20230131
  16. DOCETAXEL [Suspect]
     Active Substance: DOCETAXEL
     Dosage: 104 MG, SINGLE (CYCLE 16 OF 36 CYCLES, EVERY 3 WEEKS)
     Dates: start: 20230221, end: 20230221
  17. DOCETAXEL [Suspect]
     Active Substance: DOCETAXEL
     Dosage: 104 MG, SINGLE (CYCLE 17 OF 36 CYCLES, EVERY 3 WEEKS)
     Dates: start: 20230314, end: 20230314
  18. DOCETAXEL [Suspect]
     Active Substance: DOCETAXEL
     Dosage: 104 MG, SINGLE (CYCLE 18 OF 36 CYCLES, EVERY 3 WEEKS)
     Dates: start: 20230404, end: 20230404
  19. DOCETAXEL [Suspect]
     Active Substance: DOCETAXEL
     Dosage: 104 MG, SINGLE (CYCLE 19 OF 36 CYCLES, EVERY 3 WEEKS)
     Dates: start: 20230425, end: 20230425
  20. DOCETAXEL [Suspect]
     Active Substance: DOCETAXEL
     Dosage: 104 MG, SINGLE (CYCLE 20 OF 36 CYCLES, EVERY 3 WEEKS)
     Dates: start: 20230516, end: 20230516
  21. DOCETAXEL [Suspect]
     Active Substance: DOCETAXEL
     Dosage: 104 MG, SINGLE (CYCLE 21 OF 36 CYCLES, EVERY 3 WEEKS)
     Dates: start: 20230606, end: 20230606
  22. DOCETAXEL [Suspect]
     Active Substance: DOCETAXEL
     Dosage: 104 MG, SINGLE (CYCLE 22 OF 36 CYCLES, EVERY 3 WEEKS)
     Dates: start: 20230627, end: 20230627
  23. DOCETAXEL [Suspect]
     Active Substance: DOCETAXEL
     Dosage: 104 MG, SINGLE (CYCLE 23 OF 36 CYCLES, EVERY 3 WEEKS)
     Dates: start: 20230718, end: 20230718
  24. DOCETAXEL [Suspect]
     Active Substance: DOCETAXEL
     Dosage: 104 MG, SINGLE (CYCLE 24 OF 36 CYCLES, EVERY 3 WEEKS)
     Dates: start: 20230809, end: 20230809
  25. DOCETAXEL [Suspect]
     Active Substance: DOCETAXEL
     Dosage: 104 MG, SINGLE (CYCLE 25 OF 36 CYCLES, EVERY 3 WEEKS)
     Dates: start: 20230905, end: 20230905
  26. DOCETAXEL [Suspect]
     Active Substance: DOCETAXEL
     Dosage: 104 MG, SINGLE (CYCLE 26 OF 36 CYCLES, EVERY 3 WEEKS)
     Dates: start: 20230926, end: 20230926
  27. DOCETAXEL [Suspect]
     Active Substance: DOCETAXEL
     Dosage: 104 MG, SINGLE (CYCLE 27 OF 36 CYCLES, EVERY 3 WEEKS)
     Dates: start: 20231017, end: 20231017
  28. DOCETAXEL [Suspect]
     Active Substance: DOCETAXEL
     Dosage: 104 MG, SINGLE (CYCLE 28 OF 36 CYCLES, EVERY 3 WEEKS)
     Dates: start: 20231107, end: 20231107
  29. DOCETAXEL [Suspect]
     Active Substance: DOCETAXEL
     Dosage: 104 MG, SINGLE (CYCLE 29 OF 36 CYCLES, EVERY 3 WEEKS)
     Dates: start: 20231128, end: 20231128
  30. DOCETAXEL [Suspect]
     Active Substance: DOCETAXEL
     Dosage: 104 MG, SINGLE (CYCLE 30 OF 36 CYCLES, EVERY 3 WEEKS)
     Dates: start: 20231219, end: 20231219
  31. DOCETAXEL [Suspect]
     Active Substance: DOCETAXEL
     Dosage: 104 MG, SINGLE (CYCLE 31 OF 36 CYCLES, EVERY 3 WEEKS)
     Dates: start: 20240109, end: 20240109
  32. DOCETAXEL [Suspect]
     Active Substance: DOCETAXEL
     Dosage: 104 MG, SINGLE (CYCLE 32 OF 36 CYCLES, EVERY 3 WEEKS)
     Dates: start: 20240130, end: 20240130
  33. DOCETAXEL [Suspect]
     Active Substance: DOCETAXEL
     Dosage: 104 MG, SINGLE (CYCLE 33 OF 36 CYCLES, EVERY 3 WEEKS)
     Dates: start: 20240220, end: 20240220
  34. DOCETAXEL [Suspect]
     Active Substance: DOCETAXEL
     Dosage: 104 MG, SINGLE (CYCLE 34 OF 36 CYCLES, EVERY 3 WEEKS)
     Dates: start: 20240312, end: 20240312
  35. DOCETAXEL [Suspect]
     Active Substance: DOCETAXEL
     Dosage: 98 MG, SINGLE (CYCLE 35 OF 36 CYCLES, EVERY 3 WEEKS)
     Dates: start: 20240402, end: 20240402
  36. DOCETAXEL [Suspect]
     Active Substance: DOCETAXEL
     Dosage: 98 MG, SINGLE (CYCLE 36 OF 36 CYCLES, EVERY 3 WEEKS)
     Dates: start: 20240423, end: 20240423
  37. DOCETAXEL [Suspect]
     Active Substance: DOCETAXEL
     Indication: Non-small cell lung cancer metastatic
     Dosage: 131 MG, SINGLE (CYCLE 1 OF 36 CYCLES, EVERY 3 WEEKS)
     Dates: start: 20220412, end: 20220412
  38. DOCETAXEL [Suspect]
     Active Substance: DOCETAXEL
     Dosage: 131 MG, SINGLE (CYCLE 2 OF 36 CYCLES, EVERY 3 WEEKS)
     Dates: start: 20220503, end: 20220503
  39. DOCETAXEL [Suspect]
     Active Substance: DOCETAXEL
     Dosage: 131 MG, SINGLE (CYCLE 3 OF 36 CYCLES, EVERY 3 WEEKS)
     Dates: start: 20220524, end: 20220524
  40. DOCETAXEL [Suspect]
     Active Substance: DOCETAXEL
     Dosage: 131 MG, SINGLE (CYCLE 4 OF 36 CYCLES, EVERY 3 WEEKS)
     Dates: start: 20220614, end: 20220614
  41. DOCETAXEL [Suspect]
     Active Substance: DOCETAXEL
     Dosage: 131 MG, SINGLE (CYCLE 5 OF 36 CYCLES, EVERY 3 WEEKS)
     Dates: start: 20220705, end: 20220705
  42. DOCETAXEL [Suspect]
     Active Substance: DOCETAXEL
     Dosage: 131 MG, SINGLE (CYCLE 6 OF 36 CYCLES, EVERY 3 WEEKS)
     Dates: start: 20220726, end: 20220726
  43. DOCETAXEL [Suspect]
     Active Substance: DOCETAXEL
     Dosage: 131 MG, SINGLE (CYCLE 7 OF 36 CYCLES, EVERY 3 WEEKS)
     Dates: start: 20220816, end: 20220816
  44. DOCETAXEL [Suspect]
     Active Substance: DOCETAXEL
     Dosage: 110 MG, SINGLE (CYCLE 8 OF 36 CYCLES, EVERY 3 WEEKS)
     Dates: start: 20220906, end: 20220906
  45. DOCETAXEL [Suspect]
     Active Substance: DOCETAXEL
     Dosage: 110 MG, SINGLE (CYCLE 9 OF 36 CYCLES, EVERY 3 WEEKS)
     Dates: start: 20220927, end: 20220927
  46. DOCETAXEL [Suspect]
     Active Substance: DOCETAXEL
     Dosage: 110 MG, SINGLE (CYCLE 10 OF 36 CYCLES, EVERY 3 WEEKS)
     Dates: start: 20221018, end: 20221018
  47. DOCETAXEL [Suspect]
     Active Substance: DOCETAXEL
     Dosage: 110 MG, SINGLE (CYCLE 11 OF 36 CYCLES, EVERY 3 WEEKS)
     Dates: start: 20221108, end: 20221108
  48. DOCETAXEL [Suspect]
     Active Substance: DOCETAXEL
     Dosage: 110 MG, SINGLE (CYCLE 12 OF 36 CYCLES, EVERY 3 WEEKS)
     Dates: start: 20221129, end: 20221129
  49. DOCETAXEL [Suspect]
     Active Substance: DOCETAXEL
     Dosage: 110 MG, SINGLE (CYCLE 13 OF 36 CYCLES, EVERY 3 WEEKS)
     Dates: start: 20221220, end: 20221220
  50. DOCETAXEL [Suspect]
     Active Substance: DOCETAXEL
     Dosage: 104 MG, SINGLE (CYCLE 14 OF 36 CYCLES, EVERY 3 WEEKS)
     Dates: start: 20230110, end: 20230110
  51. DOCETAXEL [Suspect]
     Active Substance: DOCETAXEL
     Dosage: 104 MG, SINGLE (CYCLE 15 OF 36 CYCLES, EVERY 3 WEEKS)
     Dates: start: 20230131, end: 20230131
  52. DOCETAXEL [Suspect]
     Active Substance: DOCETAXEL
     Dosage: 104 MG, SINGLE (CYCLE 16 OF 36 CYCLES, EVERY 3 WEEKS)
     Dates: start: 20230221, end: 20230221
  53. DOCETAXEL [Suspect]
     Active Substance: DOCETAXEL
     Dosage: 104 MG, SINGLE (CYCLE 17 OF 36 CYCLES, EVERY 3 WEEKS)
     Dates: start: 20230314, end: 20230314
  54. DOCETAXEL [Suspect]
     Active Substance: DOCETAXEL
     Dosage: 104 MG, SINGLE (CYCLE 18 OF 36 CYCLES, EVERY 3 WEEKS)
     Dates: start: 20230404, end: 20230404
  55. DOCETAXEL [Suspect]
     Active Substance: DOCETAXEL
     Dosage: 104 MG, SINGLE (CYCLE 19 OF 36 CYCLES, EVERY 3 WEEKS)
     Dates: start: 20230425, end: 20230425
  56. DOCETAXEL [Suspect]
     Active Substance: DOCETAXEL
     Dosage: 104 MG, SINGLE (CYCLE 20 OF 36 CYCLES, EVERY 3 WEEKS)
     Dates: start: 20230516, end: 20230516
  57. DOCETAXEL [Suspect]
     Active Substance: DOCETAXEL
     Dosage: 104 MG, SINGLE (CYCLE 21 OF 36 CYCLES, EVERY 3 WEEKS)
     Dates: start: 20230606, end: 20230606
  58. DOCETAXEL [Suspect]
     Active Substance: DOCETAXEL
     Dosage: 104 MG, SINGLE (CYCLE 22 OF 36 CYCLES, EVERY 3 WEEKS)
     Dates: start: 20230627, end: 20230627
  59. DOCETAXEL [Suspect]
     Active Substance: DOCETAXEL
     Dosage: 104 MG, SINGLE (CYCLE 23 OF 36 CYCLES, EVERY 3 WEEKS)
     Dates: start: 20230718, end: 20230718
  60. DOCETAXEL [Suspect]
     Active Substance: DOCETAXEL
     Dosage: 104 MG, SINGLE (CYCLE 24 OF 36 CYCLES, EVERY 3 WEEKS)
     Dates: start: 20230809, end: 20230809
  61. DOCETAXEL [Suspect]
     Active Substance: DOCETAXEL
     Dosage: 104 MG, SINGLE (CYCLE 25 OF 36 CYCLES, EVERY 3 WEEKS)
     Dates: start: 20230905, end: 20230905
  62. DOCETAXEL [Suspect]
     Active Substance: DOCETAXEL
     Dosage: 104 MG, SINGLE (CYCLE 26 OF 36 CYCLES, EVERY 3 WEEKS)
     Dates: start: 20230926, end: 20230926
  63. DOCETAXEL [Suspect]
     Active Substance: DOCETAXEL
     Dosage: 104 MG, SINGLE (CYCLE 27 OF 36 CYCLES, EVERY 3 WEEKS)
     Dates: start: 20231017, end: 20231017
  64. DOCETAXEL [Suspect]
     Active Substance: DOCETAXEL
     Dosage: 104 MG, SINGLE (CYCLE 28 OF 36 CYCLES, EVERY 3 WEEKS)
     Dates: start: 20231107, end: 20231107
  65. DOCETAXEL [Suspect]
     Active Substance: DOCETAXEL
     Dosage: 104 MG, SINGLE (CYCLE 29 OF 36 CYCLES, EVERY 3 WEEKS)
     Dates: start: 20231128, end: 20231128
  66. DOCETAXEL [Suspect]
     Active Substance: DOCETAXEL
     Dosage: 104 MG, SINGLE (CYCLE 30 OF 36 CYCLES, EVERY 3 WEEKS)
     Dates: start: 20231219, end: 20231219
  67. DOCETAXEL [Suspect]
     Active Substance: DOCETAXEL
     Dosage: 104 MG, SINGLE (CYCLE 31 OF 36 CYCLES, EVERY 3 WEEKS)
     Dates: start: 20240109, end: 20240109
  68. DOCETAXEL [Suspect]
     Active Substance: DOCETAXEL
     Dosage: 104 MG, SINGLE (CYCLE 32 OF 36 CYCLES, EVERY 3 WEEKS)
     Dates: start: 20240130, end: 20240130
  69. DOCETAXEL [Suspect]
     Active Substance: DOCETAXEL
     Dosage: 104 MG, SINGLE (CYCLE 33 OF 36 CYCLES, EVERY 3 WEEKS)
     Dates: start: 20240220, end: 20240220
  70. DOCETAXEL [Suspect]
     Active Substance: DOCETAXEL
     Dosage: 104 MG, SINGLE (CYCLE 34 OF 36 CYCLES, EVERY 3 WEEKS)
     Dates: start: 20240312, end: 20240312
  71. DOCETAXEL [Suspect]
     Active Substance: DOCETAXEL
     Dosage: 98 MG, SINGLE (CYCLE 35 OF 36 CYCLES, EVERY 3 WEEKS)
     Dates: start: 20240402, end: 20240402
  72. DOCETAXEL [Suspect]
     Active Substance: DOCETAXEL
     Dosage: 98 MG, SINGLE (CYCLE 36 OF 36 CYCLES, EVERY 3 WEEKS)
     Dates: start: 20240423, end: 20240423
  73. CYRAMZA [Concomitant]
     Active Substance: RAMUCIRUMAB
     Indication: Chemotherapy
     Dosage: UNK

REACTIONS (3)
  - Lacrimal structure injury [Not Recovered/Not Resolved]
  - Lacrimation increased [Not Recovered/Not Resolved]
  - Dacryostenosis acquired [Not Recovered/Not Resolved]

NARRATIVE: CASE EVENT DATE: 20220401
